FAERS Safety Report 8579804 (Version 3)
Quarter: 2013Q4

REPORT INFORMATION
  Report Type: Report from Study
  Country: KR (occurrence: KR)
  Receive Date: 20120525
  Receipt Date: 20131018
  Transmission Date: 20140711
  Serious: Yes (Hospitalization)
  Sender: FDA-Public Use
  Company Number: KR-JNJFOC-20120517632

PATIENT
  Age: 84 Year
  Sex: Male
  Weight: 81.3 kg

DRUGS (8)
  1. USTEKINUMAB [Suspect]
     Indication: PSORIASIS
     Route: 058
     Dates: start: 20120326
  2. USTEKINUMAB [Suspect]
     Indication: PSORIASIS
     Route: 058
     Dates: start: 20120227
  3. DAIVOBET [Concomitant]
     Indication: PSORIASIS
     Route: 065
     Dates: start: 20110725
  4. YUHANZID [Concomitant]
     Indication: LATENT TUBERCULOSIS
     Route: 065
     Dates: start: 20120227, end: 20120815
  5. YUHANZID [Concomitant]
     Indication: LATENT TUBERCULOSIS
     Route: 065
     Dates: end: 20120227
  6. PYRIDOXINE [Concomitant]
     Indication: LATENT TUBERCULOSIS
     Route: 065
     Dates: end: 20120227
  7. PYRIDOXINE [Concomitant]
     Indication: LATENT TUBERCULOSIS
     Route: 065
     Dates: start: 20120227, end: 20120815
  8. LEGALON [Concomitant]
     Indication: PRODUCT USED FOR UNKNOWN INDICATION
     Route: 065
     Dates: start: 20120530, end: 20120815

REACTIONS (1)
  - Pneumonia [Recovered/Resolved]
